FAERS Safety Report 23277053 (Version 1)
Quarter: 2023Q4

REPORT INFORMATION
  Report Type: Spontaneous
  Country: PL (occurrence: PL)
  Receive Date: 20231208
  Receipt Date: 20231208
  Transmission Date: 20240110
  Serious: Yes (Life-Threatening)
  Sender: FDA-Public Use
  Company Number: None

PATIENT
  Age: 46 Year
  Sex: Female
  Weight: 70 kg

DRUGS (1)
  1. ULTRAVIST [Suspect]
     Active Substance: IOPROMIDE
     Indication: Urogram
     Dosage: 50 ML, ONCE
     Route: 042
     Dates: start: 20190528, end: 20190528

REACTIONS (5)
  - Localised oedema [Recovering/Resolving]
  - Rash erythematous [Recovering/Resolving]
  - Blood pressure decreased [Recovering/Resolving]
  - Face oedema [Recovering/Resolving]
  - Dyspnoea at rest [Recovering/Resolving]

NARRATIVE: CASE EVENT DATE: 20190528
